FAERS Safety Report 25599066 (Version 1)
Quarter: 2025Q3

REPORT INFORMATION
  Report Type: Spontaneous
  Country: US (occurrence: US)
  Receive Date: 20250724
  Receipt Date: 20250724
  Transmission Date: 20251021
  Serious: Yes (Other)
  Sender: EMCURE PHARMACEUTICALS LTD
  Company Number: US-AVET LIFESCIENCES LTD-2025-AVET-000236

PATIENT
  Age: 18 Year
  Sex: Male

DRUGS (6)
  1. ZONISAMIDE [Suspect]
     Active Substance: ZONISAMIDE
     Indication: Severe myoclonic epilepsy of infancy
  2. CANNABIDIOL [Concomitant]
     Active Substance: CANNABIDIOL
  3. CLOBAZAM [Concomitant]
     Active Substance: CLOBAZAM
  4. FENFLURAMINE [Concomitant]
     Active Substance: FENFLURAMINE
  5. LEVETIRACETAM [Concomitant]
     Active Substance: LEVETIRACETAM
  6. PERAMPANEL [Concomitant]
     Active Substance: PERAMPANEL

REACTIONS (1)
  - Catatonia [Recovering/Resolving]
